FAERS Safety Report 14457631 (Version 2)
Quarter: 2018Q3

REPORT INFORMATION
  Report Type: Spontaneous
  Country: US (occurrence: US)
  Receive Date: 20180130
  Receipt Date: 20180907
  Transmission Date: 20181010
  Serious: No
  Sender: FDA-Public Use
  Company Number: US-PFIZER INC-2018038945

PATIENT
  Age: 60 Year
  Sex: Female

DRUGS (1)
  1. EUCRISA [Suspect]
     Active Substance: CRISABOROLE
     Indication: DERMATITIS
     Dosage: 2 %, UNK
     Route: 061
     Dates: start: 20180116

REACTIONS (2)
  - Off label use [Unknown]
  - Burning sensation [Recovering/Resolving]
